FAERS Safety Report 6147356-X (Version None)
Quarter: 2009Q2

REPORT INFORMATION
  Report Type: 
  Country: None (occurrence: None)
  Receive Date: 20090408
  Receipt Date: 20090403
  Transmission Date: 20091009
  Serious: Yes (Death, Hospitalization)
  Sender: FDA-Public Use
  Company Number: PHHY2009BR12866

PATIENT
  Sex: Female

DRUGS (2)
  1. DIOVAN [Suspect]
     Indication: HYPERTENSION
     Dosage: 160 MG, QD
     Route: 048
  2. PROPRANOLOL [Concomitant]

REACTIONS (4)
  - CARDIAC ARREST [None]
  - DEHYDRATION [None]
  - SEPSIS [None]
  - SHOCK [None]
